FAERS Safety Report 24070139 (Version 2)
Quarter: 2024Q3

REPORT INFORMATION
  Report Type: Spontaneous
  Country: JP (occurrence: JP)
  Receive Date: 20240710
  Receipt Date: 20240722
  Transmission Date: 20241017
  Serious: Yes (Other)
  Sender: UCB
  Company Number: JP-UCBJ-CD202406168UCBPHAPROD

PATIENT
  Age: 6 Year
  Sex: Female
  Weight: 30 kg

DRUGS (1)
  1. VIMPAT [Suspect]
     Active Substance: LACOSAMIDE
     Indication: Simple partial seizures
     Dosage: 2 MILLIGRAM/KILOGRAM, ONCE DAILY (QD)
     Route: 048

REACTIONS (2)
  - Clonic convulsion [Recovering/Resolving]
  - Petit mal epilepsy [Recovering/Resolving]
